FAERS Safety Report 20376722 (Version 2)
Quarter: 2022Q1

REPORT INFORMATION
  Report Type: Report from Study
  Country: CA (occurrence: CA)
  Receive Date: 20220125
  Receipt Date: 20220208
  Transmission Date: 20220423
  Serious: Yes (Death, Hospitalization, Other)
  Sender: FDA-Public Use
  Company Number: CA-NOVARTISPH-NVSC2021CA195725

PATIENT
  Age: 80 Year
  Sex: Female
  Weight: 40.2 kg

DRUGS (1)
  1. TRAMETINIB [Suspect]
     Active Substance: TRAMETINIB
     Indication: Ovarian cancer
     Dosage: 1 MG, QD
     Route: 048
     Dates: start: 20201120, end: 20210405

REACTIONS (11)
  - Hepatic function abnormal [Fatal]
  - Biliary obstruction [Not Recovered/Not Resolved]
  - Illness [Unknown]
  - Infection susceptibility increased [Unknown]
  - Asthenia [Unknown]
  - Pain [Unknown]
  - Emotional distress [Unknown]
  - Photosensitivity reaction [Recovered/Resolved]
  - Device occlusion [Recovered/Resolved]
  - Rash [Recovered/Resolved]
  - Dehydration [Unknown]

NARRATIVE: CASE EVENT DATE: 20210201
